FAERS Safety Report 5737668-3 (Version None)
Quarter: 2008Q2

REPORT INFORMATION
  Report Type: 
  Country: None (occurrence: None)
  Receive Date: 20080514
  Receipt Date: 20080505
  Transmission Date: 20081010
  Serious: Yes (Other)
  Sender: FDA-Public Use
  Company Number: DE-AMGEN-UK277865

PATIENT
  Sex: Male

DRUGS (4)
  1. VECTIBIX [Suspect]
     Indication: DRUG USE FOR UNKNOWN INDICATION
     Route: 065
  2. ANTIBIOTIC NOS [Concomitant]
     Route: 065
  3. CORTISONE [Concomitant]
     Route: 065
  4. DOXYCYCLINE [Concomitant]
     Route: 065

REACTIONS (3)
  - PYREXIA [None]
  - RASH PUSTULAR [None]
  - SKIN IRRITATION [None]
